FAERS Safety Report 10015344 (Version 2)
Quarter: 2014Q2

REPORT INFORMATION
  Report Type: Spontaneous
  Country: US (occurrence: US)
  Receive Date: 20140317
  Receipt Date: 20140617
  Transmission Date: 20141212
  Serious: Yes (Other)
  Sender: FDA-Public Use
  Company Number: US-PFIZER INC-2014075416

PATIENT
  Age: 81 Year
  Sex: Male
  Weight: 86.17 kg

DRUGS (7)
  1. CELEBREX [Suspect]
     Indication: ARTHRALGIA
     Dosage: 200 MG, AS NEEDED
     Route: 048
     Dates: start: 2013, end: 20140401
  2. CELEBREX [Interacting]
     Indication: ROTATOR CUFF SYNDROME
  3. ENALAPRIL [Interacting]
     Indication: HYPERTENSION
     Dosage: 40 MG, 1X/DAY
  4. AMLODIPINE [Concomitant]
     Indication: BLOOD PRESSURE ABNORMAL
     Dosage: 5 MG, 1X/DAY
  5. LIPITOR [Concomitant]
     Dosage: 10 MG, 1X/DAY
  6. PLAVIX [Concomitant]
     Indication: BLOOD DISORDER
     Dosage: 75 MG, 1X/DAY
  7. METOPROLOL [Concomitant]
     Indication: BLOOD PRESSURE ABNORMAL
     Dosage: 25 MG, 1X/DAY

REACTIONS (9)
  - Drug hypersensitivity [Unknown]
  - Dermatitis exfoliative [Unknown]
  - Pruritus [Not Recovered/Not Resolved]
  - Dermatitis [Not Recovered/Not Resolved]
  - Drug interaction [Unknown]
  - Erythema [Not Recovered/Not Resolved]
  - Burning sensation [Not Recovered/Not Resolved]
  - Swelling face [Not Recovered/Not Resolved]
  - Rash [Not Recovered/Not Resolved]
